FAERS Safety Report 6040028-1 (Version None)
Quarter: 2009Q1

REPORT INFORMATION
  Report Type: 
  Country: None (occurrence: None)
  Receive Date: 20090116
  Receipt Date: 20071213
  Transmission Date: 20090719
  Serious: No
  Sender: FDA-Public Use
  Company Number: US-BRISTOL-MYERS SQUIBB COMPANY-13989025

PATIENT
  Age: 44 Year
  Sex: Male

DRUGS (4)
  1. ABILIFY [Suspect]
     Indication: PSYCHOTIC DISORDER
     Dosage: TAKEN WITH LORAZEPAM.
     Route: 048
     Dates: start: 20071005, end: 20071016
  2. ATIVAN [Suspect]
     Indication: ANXIETY
     Dosage: DOSE REDUCED TO 1MG THEN TO 0.5MG AND THEN WITHDRAWN.
     Dates: start: 20071005
  3. RISPERDAL [Concomitant]
  4. COGENTIN [Concomitant]

REACTIONS (1)
  - BRADYCARDIA [None]
